FAERS Safety Report 8904875 (Version 1)
Quarter: 2012Q4

REPORT INFORMATION
  Report Type: 
  Country: US (occurrence: US)
  Receive Date: 20121109
  Receipt Date: 20121109
  Transmission Date: 20130627
  Serious: Yes (Other)
  Sender: FDA-Public Use
  Company Number: US-ASTRAZENECA-2012SE83717

PATIENT
  Age: 69 Year
  Sex: Male
  Weight: 53.1 kg

DRUGS (7)
  1. NEXIUM [Suspect]
     Indication: GASTROOESOPHAGEAL REFLUX DISEASE
     Route: 048
  2. SEROQUEL XR [Suspect]
     Route: 048
  3. CRESTOR [Suspect]
     Route: 048
  4. METHACARBANOL [Concomitant]
     Indication: MUSCLE RELAXANT THERAPY
  5. GABAPENTIN [Concomitant]
     Indication: NERVOUS SYSTEM DISORDER
  6. CLONAZAPAM [Concomitant]
  7. DEPAKOTE [Concomitant]

REACTIONS (3)
  - Prostate cancer [Unknown]
  - Osteoporosis [Unknown]
  - Asthenia [Unknown]
